FAERS Safety Report 4343624-2 (Version None)
Quarter: 2004Q2

REPORT INFORMATION
  Report Type: 
  Country: None (occurrence: None)
  Receive Date: 20040419
  Receipt Date: 20040405
  Transmission Date: 20050107
  Serious: Yes (Other)
  Sender: FDA-Public Use
  Company Number: HQWYE402508APR04

PATIENT
  Age: 46 Year
  Sex: Male
  Weight: 81.72 kg

DRUGS (7)
  1. ADVIL [Suspect]
     Indication: MYALGIA
     Dosage: SEE IMAGE
     Route: 048
     Dates: start: 20010101, end: 20010101
  2. ADVIL [Suspect]
     Indication: MYALGIA
     Dosage: SEE IMAGE
     Route: 048
     Dates: end: 20010101
  3. ADVIL [Suspect]
     Indication: MYALGIA
     Dosage: SEE IMAGE
     Route: 048
     Dates: start: 20010101, end: 20011001
  4. PRAVCHOL           (PRAVASTATIN SODIUM) [Concomitant]
  5. LODINE [Concomitant]
  6. ALLEGRA [Concomitant]
  7. ACETYLSALICYLIC ACID SRT [Concomitant]

REACTIONS (4)
  - DRUG HYPERSENSITIVITY [None]
  - RASH GENERALISED [None]
  - RASH PRURITIC [None]
  - SWOLLEN TONGUE [None]
